FAERS Safety Report 17612676 (Version 2)
Quarter: 2020Q3

REPORT INFORMATION
  Report Type: Spontaneous
  Country: US (occurrence: US)
  Receive Date: 20200401
  Receipt Date: 20200720
  Transmission Date: 20201102
  Serious: Yes (Death, Hospitalization)
  Sender: FDA-Public Use
  Company Number: US-ACTELION-A-NJ2020-203701

PATIENT
  Age: 85 Year
  Sex: Male

DRUGS (1)
  1. OPSUMIT [Suspect]
     Active Substance: MACITENTAN
     Indication: PULMONARY HYPERTENSION
     Dosage: 10 MG, QD
     Route: 048
     Dates: start: 20200224

REACTIONS (5)
  - Sepsis [Fatal]
  - Pneumonia [Fatal]
  - Urine output decreased [Unknown]
  - Cystitis [Fatal]
  - Swelling [Unknown]

NARRATIVE: CASE EVENT DATE: 20200319
